FAERS Safety Report 9640082 (Version 6)
Quarter: 2016Q3

REPORT INFORMATION
  Report Type: Report from Study
  Country: CA (occurrence: CA)
  Receive Date: 20131023
  Receipt Date: 20160705
  Transmission Date: 20161109
  Serious: Yes (Other)
  Sender: FDA-Public Use
  Company Number: PHHY2013CA093722

PATIENT
  Age: 68 Year
  Sex: Male

DRUGS (4)
  1. SANDOSTATIN [Suspect]
     Active Substance: OCTREOTIDE ACETATE
     Indication: NEUROENDOCRINE TUMOUR
     Dosage: 50 UG, ONCE/SINGLE (TEST DOSE)
     Route: 058
     Dates: start: 20130503, end: 20130503
  2. SANDOSTATIN LAR DEPOT [Suspect]
     Active Substance: OCTREOTIDE ACETATE
     Dosage: 30 MG, EVERY FOUR WEEKS
     Route: 030
  3. SANDOSTATIN LAR DEPOT [Suspect]
     Active Substance: OCTREOTIDE ACETATE
     Indication: NEUROENDOCRINE TUMOUR
     Dosage: 30 MG, ONCE A MONTH (QMO)
     Route: 030
     Dates: start: 20130529, end: 20130826
  4. SANDOSTATIN LAR DEPOT [Suspect]
     Active Substance: OCTREOTIDE ACETATE
     Dosage: 30 MG, Q2MO (30 MG EVERY 08 WEEKS)
     Route: 030

REACTIONS (9)
  - Inappropriate schedule of drug administration [Unknown]
  - Hot flush [Unknown]
  - Blood pressure diastolic decreased [Unknown]
  - Vital functions abnormal [Unknown]
  - Dyspnoea [Unknown]
  - Diarrhoea [Unknown]
  - Peripheral swelling [Unknown]
  - Lung neoplasm [Unknown]
  - Pain [Unknown]

NARRATIVE: CASE EVENT DATE: 20150721
